FAERS Safety Report 9329406 (Version 1)
Quarter: 2013Q2

REPORT INFORMATION
  Report Type: Spontaneous
  Country: US (occurrence: US)
  Receive Date: 20130604
  Receipt Date: 20130604
  Transmission Date: 20140414
  Serious: No
  Sender: FDA-Public Use
  Company Number: US-009507513-1305USA018076

PATIENT
  Age: 17 Year
  Sex: Female
  Weight: 48.73 kg

DRUGS (1)
  1. NEXPLANON [Suspect]
     Indication: CONTRACEPTION
     Dosage: 1 ROD, UNK
     Dates: start: 20130528, end: 20130528

REACTIONS (3)
  - Implant site pain [Recovering/Resolving]
  - Device difficult to use [Recovering/Resolving]
  - Product quality issue [Unknown]
